FAERS Safety Report 8967061 (Version 2)
Quarter: 2012Q4

REPORT INFORMATION
  Report Type: 
  Country: US (occurrence: US)
  Receive Date: 20121214
  Receipt Date: 20121231
  Transmission Date: 20130627
  Serious: No
  Sender: FDA-Public Use
  Company Number: US-TEVA-376043USA

PATIENT
  Age: 18 Year
  Sex: Female
  Weight: 87.62 kg

DRUGS (1)
  1. PLAN B ONE-STEP [Suspect]
     Indication: POST COITAL CONTRACEPTION
     Dosage: 1.5 Milligram Daily;
     Route: 048
     Dates: start: 20121204, end: 20121204

REACTIONS (2)
  - Pelvic pain [Recovered/Resolved]
  - Vomiting [Recovered/Resolved]
